FAERS Safety Report 9781099 (Version 1)
Quarter: 2013Q4

REPORT INFORMATION
  Report Type: Spontaneous
  Country: US (occurrence: None)
  Receive Date: 20131220
  Receipt Date: 20131220
  Transmission Date: 20140711
  Serious: Yes (Hospitalization)
  Sender: FDA-Public Use
  Company Number: 2013P1021923

PATIENT
  Age: 47 Year
  Sex: Female

DRUGS (4)
  1. AMLODIPINE [Suspect]
     Route: 048
  2. ETHANOL [Suspect]
  3. ZIPRASIDONE [Concomitant]
  4. PREGABALIN [Concomitant]

REACTIONS (11)
  - Overdose [None]
  - Poisoning [None]
  - Tachycardia [None]
  - Heart rate increased [None]
  - Hypotension [None]
  - Anxiety [None]
  - Haemodynamic instability [None]
  - Shock [None]
  - Metabolic acidosis [None]
  - Pleural effusion [None]
  - Hyperlipidaemia [None]
